FAERS Safety Report 7338847-4 (Version None)
Quarter: 2011Q1

REPORT INFORMATION
  Report Type: 
  Country: None (occurrence: None)
  Receive Date: 20110308
  Receipt Date: 20110301
  Transmission Date: 20110831
  Serious: Yes (Other)
  Sender: FDA-Public Use
  Company Number: GB-PFIZER INC-2010155252

PATIENT
  Sex: Male

DRUGS (2)
  1. SUNITINIB MALATE [Suspect]
     Indication: RENAL CANCER
     Dosage: 50 MG, CYCLIC 4/6
     Route: 048
  2. ZOLEDRONIC ACID [Suspect]
     Indication: BONE PAIN
     Dosage: 4 MG, MONTHLY
     Route: 042

REACTIONS (1)
  - OSTEONECROSIS OF JAW [None]
